FAERS Safety Report 14194934 (Version 1)
Quarter: 2017Q4

REPORT INFORMATION
  Report Type: Report from Study
  Country: None (occurrence: US)
  Receive Date: 20171116
  Receipt Date: 20171116
  Transmission Date: 20180321
  Serious: Yes (Other)
  Sender: FDA-Public Use
  Company Number: US-ABBVIE-17K-163-2014792-00

PATIENT
  Age: 56 Year
  Sex: Male

DRUGS (1)
  1. HUMIRA [Suspect]
     Active Substance: ADALIMUMAB
     Indication: PSORIASIS
     Route: 058
     Dates: end: 2017

REACTIONS (6)
  - Peripheral swelling [Unknown]
  - Mass [Unknown]
  - Intervertebral disc protrusion [Unknown]
  - Psoriasis [Unknown]
  - Rheumatoid arthritis [Unknown]
  - Rash pruritic [Unknown]

NARRATIVE: CASE EVENT DATE: 2015
